FAERS Safety Report 13083639 (Version 4)
Quarter: 2017Q1

REPORT INFORMATION
  Report Type: Report from Study
  Country: US (occurrence: US)
  Receive Date: 20170104
  Receipt Date: 20170311
  Transmission Date: 20170428
  Serious: Yes (Other)
  Sender: FDA-Public Use
  Company Number: US-AMGEN-USASL2016179551

PATIENT
  Age: 81 Year
  Sex: Female

DRUGS (2)
  1. REPATHA [Suspect]
     Active Substance: EVOLOCUMAB
     Indication: BLOOD CHOLESTEROL ABNORMAL
     Dosage: 140 MG, Q2WK
     Route: 065
     Dates: start: 2016
  2. REPATHA [Suspect]
     Active Substance: EVOLOCUMAB
     Dosage: 420 MG, QMO
     Route: 065

REACTIONS (6)
  - Arthralgia [Unknown]
  - Depression [Unknown]
  - Fatigue [Unknown]
  - Back pain [Unknown]
  - Memory impairment [Not Recovered/Not Resolved]
  - Influenza like illness [Unknown]
